FAERS Safety Report 6181880-9 (Version None)
Quarter: 2009Q2

REPORT INFORMATION
  Report Type: 
  Country: None (occurrence: None)
  Receive Date: 20090417
  Receipt Date: 20090402
  Transmission Date: 20091009
  Serious: Yes (Life-Threatening, Other)
  Sender: FDA-Public Use
  Company Number: ES-IGSA-IG557

PATIENT
  Age: 80 Year
  Sex: Male

DRUGS (2)
  1. FLEBOGAMMA [Suspect]
     Indication: THROMBOCYTOPENIC PURPURA
     Dosage: 70 GM
     Dates: start: 20071217, end: 20071218
  2. PREDNISONA 100 MG [Concomitant]

REACTIONS (2)
  - ANGINA PECTORIS [None]
  - ELECTROCARDIOGRAM ST-T SEGMENT ELEVATION [None]
